FAERS Safety Report 9995237 (Version 2)
Quarter: 2014Q2

REPORT INFORMATION
  Report Type: Spontaneous
  Country: IT (occurrence: None)
  Receive Date: 20140307
  Receipt Date: 20140429
  Transmission Date: 20141212
  Serious: Yes (Hospitalization)
  Sender: FDA-Public Use
  Company Number: AUR-APL-2014-02207

PATIENT
  Age: 13 Year
  Sex: Female

DRUGS (1)
  1. MIRTAZAPINE (MIRTAZAPINE) [Suspect]
     Indication: PRODUCT USED FOR UNKNOWN INDICATION
     Dosage: TOTAL
     Route: 048
     Dates: start: 20121009, end: 20121009

REACTIONS (6)
  - Asthenia [None]
  - Ataxia [None]
  - Sinus arrhythmia [None]
  - Malaise [None]
  - Medication error [None]
  - Wrong drug administered [None]
